FAERS Safety Report 12463599 (Version 3)
Quarter: 2016Q3

REPORT INFORMATION
  Report Type: Report from Study
  Country: US (occurrence: US)
  Receive Date: 20160614
  Receipt Date: 20160802
  Transmission Date: 20161109
  Serious: Yes (Death, Hospitalization, Other)
  Sender: FDA-Public Use
  Company Number: US-GILEAD-2016-0218182

PATIENT
  Age: 74 Year
  Sex: Male

DRUGS (8)
  1. AMBRISENTAN [Suspect]
     Active Substance: AMBRISENTAN
     Indication: PULMONARY HYPERTENSION
     Dosage: 5 MG, QD
     Route: 048
     Dates: start: 20141111
  2. COREG [Concomitant]
     Active Substance: CARVEDILOL
  3. SPIRIVA [Concomitant]
     Active Substance: TIOTROPIUM BROMIDE MONOHYDRATE
  4. BUMEX [Concomitant]
     Active Substance: BUMETANIDE
  5. SYNTHROID [Concomitant]
     Active Substance: LEVOTHYROXINE SODIUM
  6. COUMADIN [Concomitant]
     Active Substance: WARFARIN SODIUM
  7. DIGOXIN. [Concomitant]
     Active Substance: DIGOXIN
  8. ALLOPURINOL. [Concomitant]
     Active Substance: ALLOPURINOL

REACTIONS (4)
  - Myoclonus [Unknown]
  - Unresponsive to stimuli [Unknown]
  - Death [Fatal]
  - Brain injury [Unknown]

NARRATIVE: CASE EVENT DATE: 20160528
